FAERS Safety Report 25664037 (Version 1)
Quarter: 2025Q3

REPORT INFORMATION
  Report Type: Spontaneous
  Country: CN (occurrence: CN)
  Receive Date: 20250811
  Receipt Date: 20250811
  Transmission Date: 20251021
  Serious: Yes (Hospitalization, Other)
  Sender: SANOFI AVENTIS
  Company Number: CN-SA-2025SA231063

PATIENT
  Age: 71 Year
  Sex: Male
  Weight: 57 kg

DRUGS (12)
  1. ELOXATIN [Suspect]
     Active Substance: OXALIPLATIN
     Indication: Gastric cancer
     Dosage: 200 MG, Q3W, D1
     Route: 041
     Dates: start: 20250219, end: 20250219
  2. ELOXATIN [Suspect]
     Active Substance: OXALIPLATIN
     Dosage: 150 MG, Q3W, D1
     Route: 041
     Dates: start: 20250317, end: 20250317
  3. ELOXATIN [Suspect]
     Active Substance: OXALIPLATIN
     Dosage: 150 MG, Q3W, D1
     Route: 041
     Dates: start: 20250508, end: 20250508
  4. GIMERACIL\OTERACIL\TEGAFUR [Suspect]
     Active Substance: GIMERACIL\OTERACIL POTASSIUM\TEGAFUR
     Indication: Gastric cancer
     Dosage: 60 MG, BID,  (D1-14) Q21D
     Route: 048
     Dates: start: 20250219
  5. GIMERACIL\OTERACIL\TEGAFUR [Suspect]
     Active Substance: GIMERACIL\OTERACIL POTASSIUM\TEGAFUR
     Dosage: 60 MG, BID,  (D1-14) Q21D
     Route: 048
     Dates: start: 20250317
  6. GIMERACIL\OTERACIL\TEGAFUR [Suspect]
     Active Substance: GIMERACIL\OTERACIL POTASSIUM\TEGAFUR
     Dosage: 60 MG, QD,  (D1-14) Q21D
     Route: 041
     Dates: start: 20250508, end: 20250521
  7. TISLELIZUMAB [Suspect]
     Active Substance: TISLELIZUMAB
     Indication: Gastric cancer
     Dosage: 200 MG, Q3W, D0
     Route: 041
     Dates: start: 20250221, end: 20250221
  8. TISLELIZUMAB [Suspect]
     Active Substance: TISLELIZUMAB
     Dosage: 200 MG, Q3W, D0
     Route: 041
     Dates: start: 20250317, end: 20250317
  9. TISLELIZUMAB [Suspect]
     Active Substance: TISLELIZUMAB
     Dosage: 200 MG, Q3W, D0
     Route: 048
     Dates: start: 20250508, end: 20250508
  10. SODIUM CHLORIDE [Concomitant]
     Active Substance: SODIUM CHLORIDE
     Indication: Vehicle solution use
     Dosage: 100 ML, QD
     Route: 041
     Dates: start: 20250508, end: 20250508
  11. DEXTROSE [Concomitant]
     Active Substance: DEXTROSE MONOHYDRATE
     Indication: Vehicle solution use
     Dosage: 500 ML, QD
     Route: 041
     Dates: start: 20250508, end: 20250508
  12. MYCOPHENOLATE MOFETIL [Concomitant]
     Active Substance: MYCOPHENOLATE MOFETIL
     Dosage: 500 MG, BID
     Dates: start: 202507

REACTIONS (4)
  - Immune-mediated hepatitis [Recovering/Resolving]
  - Drug-induced liver injury [Recovering/Resolving]
  - Hepatic function abnormal [Recovering/Resolving]
  - Jaundice [Recovering/Resolving]

NARRATIVE: CASE EVENT DATE: 20250301
